FAERS Safety Report 11760741 (Version 1)
Quarter: 2015Q4

REPORT INFORMATION
  Report Type: Spontaneous
  Country: FR (occurrence: FR)
  Receive Date: 20151120
  Receipt Date: 20151120
  Transmission Date: 20160304
  Serious: Yes (Hospitalization)
  Sender: FDA-Public Use
  Company Number: FR-BAYER-2015-422567

PATIENT
  Age: 75 Year
  Sex: Male
  Weight: 66 kg

DRUGS (4)
  1. AUGMENTIN [Suspect]
     Active Substance: AMOXICILLIN\CLAVULANATE POTASSIUM
     Dosage: UNK
     Route: 048
     Dates: start: 20150915
  2. PREVISCAN [Suspect]
     Active Substance: FLUINDIONE
     Indication: PULMONARY EMBOLISM
     Dosage: UNK
     Route: 048
     Dates: start: 2003, end: 20150916
  3. STIVARGA [Suspect]
     Active Substance: REGORAFENIB
     Indication: COLON CANCER METASTATIC
     Dosage: 80 MG, UNK
     Route: 048
     Dates: start: 20150905, end: 20150909
  4. OFLOCET [Suspect]
     Active Substance: OFLOXACIN
     Dosage: 400 MG, QD
     Route: 048
     Dates: start: 20150915

REACTIONS (10)
  - Disseminated intravascular coagulation [Recovered/Resolved]
  - International normalised ratio increased [Recovered/Resolved]
  - Epistaxis [Recovered/Resolved]
  - Pyrexia [Recovered/Resolved]
  - Haematuria [Recovered/Resolved]
  - Pyrexia [Not Recovered/Not Resolved]
  - Mouth haemorrhage [Recovered/Resolved]
  - Hypertension [Recovering/Resolving]
  - Hyperthermia [Recovered/Resolved]
  - Abdominal pain [Recovered/Resolved]

NARRATIVE: CASE EVENT DATE: 20150907
